FAERS Safety Report 8830895 (Version 1)
Quarter: 2012Q4

REPORT INFORMATION
  Report Type: 
  Country: US (occurrence: US)
  Receive Date: 20121009
  Receipt Date: 20121009
  Transmission Date: 20130627
  Serious: No
  Sender: FDA-Public Use
  Company Number: US-BAYER-2012-102002

PATIENT
  Age: 85 Year
  Sex: Female

DRUGS (3)
  1. CIPRO [Suspect]
     Indication: URINARY TRACT INFECTION
     Dosage: 500 mg, BID
     Route: 048
     Dates: start: 20120917, end: 20120926
  2. ACETYLSALICYLIC ACID({=100 MG) [Concomitant]
     Dosage: 1 DF, QD
  3. MAXZIDE [Concomitant]

REACTIONS (5)
  - Constipation [Recovered/Resolved]
  - Dizziness [Recovered/Resolved]
  - Dizziness [None]
  - Tremor [Recovered/Resolved]
  - Asthenia [Recovered/Resolved]
